FAERS Safety Report 11859277 (Version 1)
Quarter: 2015Q4

REPORT INFORMATION
  Report Type: Spontaneous
  Country: US (occurrence: US)
  Receive Date: 20151221
  Receipt Date: 20151221
  Transmission Date: 20160305
  Serious: Yes (Other)
  Sender: FDA-Public Use
  Company Number: US-TEIKOKU PHARMA USA-TPU2015-00665

PATIENT
  Age: 60 Year
  Sex: Female
  Weight: 81.72 kg

DRUGS (12)
  1. SHOTS IN BACK, KNEE, LEGS AND SHOULDER FOR AN UNKNOWN REASON [Concomitant]
  2. ZITHROMAX [Concomitant]
     Active Substance: AZITHROMYCIN DIHYDRATE
     Indication: STREPTOCOCCAL INFECTION
     Dates: start: 201510
  3. APAP CODEINE [Concomitant]
     Indication: PAIN
     Dates: start: 201510
  4. PENICILLIN [Concomitant]
     Active Substance: PENICILLIN
     Indication: STREPTOCOCCAL INFECTION
     Dates: start: 2015
  5. LIDODERM [Suspect]
     Active Substance: LIDOCAINE
     Indication: FIBROMYALGIA
     Dates: start: 2005
  6. LIDODERM [Suspect]
     Active Substance: LIDOCAINE
     Indication: SPINAL CORD INJURY
  7. ALPRAZOLAM. [Concomitant]
     Active Substance: ALPRAZOLAM
     Indication: INSOMNIA
  8. VALIUM [Concomitant]
     Active Substance: DIAZEPAM
     Dates: start: 1976
  9. LIDODERM [Suspect]
     Active Substance: LIDOCAINE
     Indication: MYALGIA
  10. LIDODERM [Suspect]
     Active Substance: LIDOCAINE
     Indication: MUSCLE SPASMS
  11. ALBUTEROL. [Concomitant]
     Active Substance: ALBUTEROL
     Indication: ASTHMA
  12. ALPRAZOLAM. [Concomitant]
     Active Substance: ALPRAZOLAM
     Indication: ANXIETY
     Route: 048
     Dates: start: 2005

REACTIONS (32)
  - Cyst [Not Recovered/Not Resolved]
  - Chlamydial infection [Unknown]
  - Amnesia [Unknown]
  - Sepsis [Unknown]
  - Inflammation [Not Recovered/Not Resolved]
  - Peripheral arterial occlusive disease [Not Recovered/Not Resolved]
  - Hand fracture [Not Recovered/Not Resolved]
  - Anxiety disorder [Not Recovered/Not Resolved]
  - Spinal cord injury cervical [Not Recovered/Not Resolved]
  - Body height decreased [Not Recovered/Not Resolved]
  - Road traffic accident [Recovered/Resolved]
  - Hypoxia [Unknown]
  - Contusion [Unknown]
  - Streptococcal infection [Not Recovered/Not Resolved]
  - Surgery [Unknown]
  - Flashback [Unknown]
  - Cerebrovascular accident [Unknown]
  - Autoimmune thyroiditis [Not Recovered/Not Resolved]
  - Heart rate increased [Unknown]
  - Blood pressure increased [Unknown]
  - Cyst [Unknown]
  - Thrombosis [Unknown]
  - Varicose vein [Not Recovered/Not Resolved]
  - Spinal cord injury thoracic [Not Recovered/Not Resolved]
  - Hypoaesthesia [Not Recovered/Not Resolved]
  - Injury [Not Recovered/Not Resolved]
  - Victim of sexual abuse [Recovered/Resolved]
  - Exostosis [Unknown]
  - Head injury [Not Recovered/Not Resolved]
  - Cerebrovascular accident [Not Recovered/Not Resolved]
  - Abscess [Not Recovered/Not Resolved]
  - Lower limb fracture [Not Recovered/Not Resolved]

NARRATIVE: CASE EVENT DATE: 2005
